FAERS Safety Report 23498743 (Version 1)
Quarter: 2024Q1

REPORT INFORMATION
  Report Type: Report from Study
  Country: FR (occurrence: FR)
  Receive Date: 20240208
  Receipt Date: 20240208
  Transmission Date: 20240410
  Serious: Yes (Other)
  Sender: FDA-Public Use
  Company Number: FR-002147023-NVSC2022FR018278

PATIENT
  Age: 35 Year
  Sex: Female
  Weight: 82 kg

DRUGS (6)
  1. ETANERCEPT [Suspect]
     Active Substance: ETANERCEPT
     Indication: Migraine
     Dosage: 50 MG, WEEKLY
     Route: 058
     Dates: start: 20211007, end: 20220317
  2. PANTOPRAZOLE [Concomitant]
     Active Substance: PANTOPRAZOLE
     Indication: Product used for unknown indication
     Dosage: 20 MG, QD
     Route: 065
  3. PANTOPRAZOLE [Concomitant]
     Active Substance: PANTOPRAZOLE
     Dosage: 20 MG, QD
     Route: 065
  4. EFFERALGAN [Concomitant]
     Active Substance: ACETAMINOPHEN
     Indication: Product used for unknown indication
     Dosage: 1000 MG, AS NEEDED (PRN)
     Route: 065
  5. MOBIC [Concomitant]
     Active Substance: MELOXICAM
     Indication: Product used for unknown indication
     Dosage: FREQ: AS NECESSARY;15 MG, PRN
     Route: 065
  6. MOBIC [Concomitant]
     Active Substance: MELOXICAM
     Dosage: FREQ: AS NECESSARY;15 MG, PRN
     Route: 065

REACTIONS (3)
  - Chronic inflammatory response syndrome [Recovered/Resolved]
  - Migraine [Recovered/Resolved]
  - Drug effect less than expected [Not Recovered/Not Resolved]

NARRATIVE: CASE EVENT DATE: 20210101
